FAERS Safety Report 9332688 (Version 2)
Quarter: 2013Q2

REPORT INFORMATION
  Report Type: Report from Study
  Country: CA (occurrence: CA)
  Receive Date: 20130606
  Receipt Date: 20130610
  Transmission Date: 20140414
  Serious: Yes (Other)
  Sender: FDA-Public Use
  Company Number: PHHY2013CA055520

PATIENT
  Age: 38 Year
  Sex: Female

DRUGS (3)
  1. GILENYA [Suspect]
     Indication: RELAPSING-REMITTING MULTIPLE SCLEROSIS
     Dosage: 0.5 MG, QD
     Route: 048
     Dates: start: 20130530, end: 20130530
  2. PAROXETIN [Concomitant]
     Dosage: 2 DF, UNK
     Route: 048
  3. PRAMIPEXOLE [Concomitant]
     Route: 048

REACTIONS (8)
  - Sinus bradycardia [Recovered/Resolved]
  - Blood pressure decreased [Recovering/Resolving]
  - Throat irritation [Unknown]
  - Diplopia [Unknown]
  - Fatigue [Recovered/Resolved]
  - Nausea [Not Recovered/Not Resolved]
  - Chest discomfort [Recovered/Resolved]
  - Dizziness [Recovered/Resolved]
